FAERS Safety Report 4289171-8 (Version None)
Quarter: 2004Q1

REPORT INFORMATION
  Report Type: 
  Country: None (occurrence: None)
  Receive Date: 20040206
  Receipt Date: 20040204
  Transmission Date: 20041129
  Serious: Yes (Other)
  Sender: FDA-Public Use
  Company Number: USA-2002-0001713

PATIENT
  Age: 33 Year
  Sex: Male

DRUGS (4)
  1. OXYCONTIN [Suspect]
  2. COCAINE(COCAINE) [Suspect]
  3. VICODIN [Suspect]
  4. VALIUM [Suspect]

REACTIONS (2)
  - DRUG SCREEN POSITIVE [None]
  - PHYSICAL ASSAULT [None]
